FAERS Safety Report 5263855-7 (Version None)
Quarter: 2007Q1

REPORT INFORMATION
  Report Type: 
  Country: None (occurrence: None)
  Receive Date: 20061213
  Receipt Date: 20040326
  Transmission Date: 20070707
  Serious: Yes (Other)
  Sender: FDA-Public Use
  Company Number: 2004UW05960

PATIENT
  Age: 72 Year
  Sex: Female
  Weight: 75.7507 kg

DRUGS (8)
  1. IRESSA [Suspect]
     Indication: NON-SMALL CELL LUNG CANCER
     Dates: start: 20030921
  2. TOPROL-XL [Concomitant]
  3. LIPITOR [Concomitant]
  4. SYNTHROID [Concomitant]
  5. ASCORBIC ACID [Concomitant]
  6. VITAMIN E [Concomitant]
  7. VITAMIN CAP [Concomitant]
  8. CALCIUM [Concomitant]

REACTIONS (2)
  - HYPERAESTHESIA [None]
  - HYPOTRICHOSIS [None]
